FAERS Safety Report 21253988 (Version 1)
Quarter: 2022Q3

REPORT INFORMATION
  Report Type: Spontaneous
  Country: US (occurrence: US)
  Receive Date: 20220825
  Receipt Date: 20220825
  Transmission Date: 20221027
  Serious: No
  Sender: FDA-Public Use
  Company Number: US-AMGEN-USASP2022142203

PATIENT
  Age: 27 Year
  Sex: Female

DRUGS (3)
  1. PROLIA [Suspect]
     Active Substance: DENOSUMAB
     Indication: Fibrous dysplasia of bone
     Dosage: 60 MILLIGRAM, Q3MO
     Route: 058
  2. VITAMIN D [Concomitant]
     Active Substance: VITAMIN D NOS
     Dosage: 2000 UNIT, QD
  3. CALCIUM [Concomitant]
     Active Substance: CALCIUM
     Dosage: UNK UNK, QD

REACTIONS (2)
  - Off label use [Unknown]
  - Drug ineffective for unapproved indication [Unknown]
